FAERS Safety Report 4468085-4 (Version None)
Quarter: 2004Q4

REPORT INFORMATION
  Report Type: 
  Country: None (occurrence: None)
  Receive Date: 20041004
  Receipt Date: 20041004
  Transmission Date: 20050328
  Serious: Yes (Other)
  Sender: FDA-Public Use
  Company Number: None

PATIENT
  Age: 55 Year
  Sex: Male
  Weight: 71.4 kg

DRUGS (11)
  1. TERAZOSIN HCL [Suspect]
  2. ACCU-CHEK COMFORT CURVE-H TEST STRIP [Concomitant]
  3. LANCET [Concomitant]
  4. QUETIAPINE FUMARATE [Concomitant]
  5. TRAZODONE HCL [Concomitant]
  6. VENLAFAXINE HCL [Concomitant]
  7. SIMVASTATIN [Concomitant]
  8. TERAZOSIN HCL [Concomitant]
  9. TABLET CUTTER [Concomitant]
  10. METFORMIN HCL [Concomitant]
  11. ATROPINE / DIPHENOXYLATE [Concomitant]

REACTIONS (1)
  - DIZZINESS [None]
